FAERS Safety Report 22351855 (Version 1)
Quarter: 2023Q2

REPORT INFORMATION
  Report Type: Spontaneous
  Country: US (occurrence: None)
  Receive Date: 20230522
  Receipt Date: 20230522
  Transmission Date: 20230721
  Serious: Yes (Other)
  Sender: FDA-Public Use
  Company Number: None

PATIENT
  Age: 61 Year
  Sex: Female
  Weight: 56.7 kg

DRUGS (5)
  1. CIPROFLOXACIN [Suspect]
     Active Substance: CIPROFLOXACIN
     Indication: Urinary tract infection
     Dosage: FREQUENCY : DAILY;?
     Route: 048
     Dates: start: 202207, end: 202208
  2. VITAMIN E [Concomitant]
     Active Substance: .ALPHA.-TOCOPHEROL
  3. CALCIUM [Concomitant]
     Active Substance: CALCIUM
  4. MAGNESIUM [Concomitant]
     Active Substance: MAGNESIUM
  5. VITAMIN D NOS [Concomitant]
     Active Substance: VITAMIN D NOS

REACTIONS (4)
  - Arthralgia [None]
  - Meniscus injury [None]
  - Ligament sprain [None]
  - Tendon pain [None]

NARRATIVE: CASE EVENT DATE: 20220901
